FAERS Safety Report 15368400 (Version 3)
Quarter: 2018Q4

REPORT INFORMATION
  Report Type: Report from Study
  Country: US (occurrence: US)
  Receive Date: 20180910
  Receipt Date: 20181203
  Transmission Date: 20190204
  Serious: Yes (Other)
  Sender: FDA-Public Use
  Company Number: US-JAZZ-2018-US-003743

PATIENT
  Sex: Female

DRUGS (26)
  1. XYREM [Suspect]
     Active Substance: SODIUM OXYBATE
     Dosage: DOSE ADJUSTMENTS
     Route: 048
     Dates: start: 201212, end: 201403
  2. TYLENOL EXTRA STRENGTH [Concomitant]
     Active Substance: ACETAMINOPHEN
  3. DICYCLOVERINE [Concomitant]
     Active Substance: DICYCLOMINE HYDROCHLORIDE
  4. XYREM [Suspect]
     Active Substance: SODIUM OXYBATE
     Indication: NARCOLEPSY
     Dosage: 2.25 G, BID
     Route: 048
     Dates: start: 201211, end: 201212
  5. UNITHROID [Suspect]
     Active Substance: LEVOTHYROXINE SODIUM
     Indication: AUTOIMMUNE THYROIDITIS
     Dosage: 137 ?G
  6. TRAMADOL. [Concomitant]
     Active Substance: TRAMADOL
  7. ZYRTEC [Concomitant]
     Active Substance: CETIRIZINE HYDROCHLORIDE
  8. ESTRADIOL. [Concomitant]
     Active Substance: ESTRADIOL
  9. WELLBUTRIN [Concomitant]
     Active Substance: BUPROPION HYDROCHLORIDE
  10. FERROUS SULFATE. [Concomitant]
     Active Substance: FERROUS SULFATE
  11. SERTRALINE HCL [Concomitant]
     Active Substance: SERTRALINE HYDROCHLORIDE
  12. VALTREX [Concomitant]
     Active Substance: VALACYCLOVIR HYDROCHLORIDE
  13. XYREM [Suspect]
     Active Substance: SODIUM OXYBATE
     Dosage: 3.75 G, BID
     Route: 048
     Dates: start: 201403
  14. CYMBALTA [Concomitant]
     Active Substance: DULOXETINE HYDROCHLORIDE
  15. CELEBREX [Concomitant]
     Active Substance: CELECOXIB
  16. PROMETHAZINE [Concomitant]
     Active Substance: PROMETHAZINE\PROMETHAZINE HYDROCHLORIDE
  17. UNITHROID [Suspect]
     Active Substance: LEVOTHYROXINE SODIUM
     Dosage: 125 ?G
  18. PERCOCET [Concomitant]
     Active Substance: ACETAMINOPHEN\OXYCODONE HYDROCHLORIDE
  19. OXYCODONE HYDROCHLORIDE. [Concomitant]
     Active Substance: OXYCODONE HYDROCHLORIDE
  20. ACIPHEX [Concomitant]
     Active Substance: RABEPRAZOLE SODIUM
  21. LORATADINE. [Concomitant]
     Active Substance: LORATADINE
  22. GABAPENTIN. [Concomitant]
     Active Substance: GABAPENTIN
  23. DIAZEPAM. [Concomitant]
     Active Substance: DIAZEPAM
  24. CYCLOBENZAPRINE HYDROCHLORIDE. [Concomitant]
     Active Substance: CYCLOBENZAPRINE HYDROCHLORIDE
  25. HYDROCORTISONE. [Concomitant]
     Active Substance: HYDROCORTISONE
  26. ZOLOFT [Concomitant]
     Active Substance: SERTRALINE HYDROCHLORIDE

REACTIONS (3)
  - Supraventricular tachycardia [Not Recovered/Not Resolved]
  - Headache [Unknown]
  - Autoimmune thyroiditis [Not Recovered/Not Resolved]
